FAERS Safety Report 8625827-1 (Version None)
Quarter: 2012Q3

REPORT INFORMATION
  Report Type: 
  Country: None (occurrence: None)
  Receive Date: 20120827
  Receipt Date: 20120823
  Transmission Date: 20120928
  Serious: Yes (Life-Threatening)
  Sender: FDA-Public Use
  Company Number: CA-ROCHE-1106830

PATIENT
  Sex: Female
  Weight: 86 kg

DRUGS (12)
  1. METOPROLOL TARTRATE [Concomitant]
     Route: 048
  2. RISEDRONATE SODIUM [Concomitant]
     Route: 048
  3. LUCENTIS [Suspect]
     Indication: PRODUCT USED FOR UNKNOWN INDICATION
     Route: 031
  4. DIOVAN [Concomitant]
     Route: 048
  5. LANSOPRAZOLE [Concomitant]
     Dosage: DELAYED RELEASE CAPSULE
     Route: 048
  6. NOVOLIN 70/30 [Concomitant]
     Route: 030
  7. PLAVIX [Concomitant]
     Route: 048
  8. LIPITOR [Concomitant]
     Route: 048
  9. AMLODIPINE [Concomitant]
     Route: 048
  10. GABAPENTIN [Concomitant]
     Route: 048
  11. AVASTIN [Suspect]
     Indication: PRODUCT USED FOR UNKNOWN INDICATION
     Route: 031
  12. CALCIUM CARBONATE [Concomitant]
     Route: 048

REACTIONS (2)
  - ANGINA UNSTABLE [None]
  - PROTEINURIA [None]
